FAERS Safety Report 9125562 (Version 3)
Quarter: 2013Q2

REPORT INFORMATION
  Report Type: Spontaneous
  Country: US (occurrence: US)
  Receive Date: 20130121
  Receipt Date: 20130409
  Transmission Date: 20140414
  Serious: Yes (Other)
  Sender: FDA-Public Use
  Company Number: US-GLAXOSMITHKLINE-A1008385A

PATIENT
  Age: 72 Year
  Sex: Female

DRUGS (2)
  1. ADVAIR [Suspect]
     Indication: ASTHMA
     Dosage: 1PUFF TWICE PER DAY
     Route: 055
     Dates: start: 20120819
  2. ALBUTEROL [Concomitant]
     Route: 055

REACTIONS (9)
  - VIIth nerve paralysis [Recovered/Resolved]
  - Nasopharyngitis [Not Recovered/Not Resolved]
  - Sneezing [Not Recovered/Not Resolved]
  - Cough [Not Recovered/Not Resolved]
  - Rhinorrhoea [Not Recovered/Not Resolved]
  - Chills [Not Recovered/Not Resolved]
  - Chest discomfort [Not Recovered/Not Resolved]
  - Wheezing [Not Recovered/Not Resolved]
  - Product quality issue [Unknown]
